FAERS Safety Report 6336536-6 (Version None)
Quarter: 2009Q3

REPORT INFORMATION
  Report Type: 
  Country: None (occurrence: None)
  Receive Date: 20090901
  Receipt Date: 20090826
  Transmission Date: 20100115
  Serious: Yes (Other)
  Sender: FDA-Public Use
  Company Number: US-ROCHE-652850

PATIENT
  Sex: Female

DRUGS (1)
  1. BONIVA [Suspect]
     Indication: DRUG USE FOR UNKNOWN INDICATION
     Dosage: DRUG TAKEN FOR 5-6 MONTHS
     Route: 065

REACTIONS (2)
  - ANKLE FRACTURE [None]
  - WRONG TECHNIQUE IN DRUG USAGE PROCESS [None]
